FAERS Safety Report 11011611 (Version 2)
Quarter: 2015Q2

REPORT INFORMATION
  Report Type: Spontaneous
  Country: US (occurrence: US)
  Receive Date: 20150410
  Receipt Date: 20150526
  Transmission Date: 20150821
  Serious: No
  Sender: FDA-Public Use
  Company Number: US-009507513-1503USA012324

PATIENT
  Sex: Female

DRUGS (1)
  1. DULERA [Suspect]
     Active Substance: FORMOTEROL FUMARATE DIHYDRATE\MOMETASONE FUROATE
     Indication: ASTHMA
     Dosage: DOSE 200/5 MICROGRAM, FREQUENCY UNSPECIFIED BY REPORTER
     Route: 055

REACTIONS (3)
  - Product container issue [Unknown]
  - Drug dose omission [Unknown]
  - No adverse event [Unknown]
